FAERS Safety Report 4563090-1 (Version None)
Quarter: 2005Q1

REPORT INFORMATION
  Report Type: 
  Country: None (occurrence: None)
  Receive Date: 20050125
  Receipt Date: 20050112
  Transmission Date: 20050727
  Serious: Yes (Hospitalization)
  Sender: FDA-Public Use
  Company Number: 2005015505

PATIENT
  Age: 49 Year
  Sex: Female

DRUGS (6)
  1. SOLU-MEDROL [Suspect]
     Indication: ILL-DEFINED DISORDER
     Dosage: 20 MG (20 MG, 1 IN 1 D), INTRAVENOUS
     Route: 042
     Dates: start: 20041102, end: 20041102
  2. DEXCHLORPHENIRAMNE MALEATE (DEXCHLORPHENIRAMINE MALEATE) [Suspect]
     Indication: ILL-DEFINED DISORDER
     Dosage: 5 MG (5 MG, 1 IN 1 D), INTRAMUSCULAR
     Route: 030
     Dates: start: 20041102, end: 20041102
  3. CLITAXEL (PACLITAXEL) [Suspect]
     Indication: OVARIAN CANCER
     Dosage: 120 MG (120 MG, 1 IN 1 D), INTRAVENOUS
     Route: 042
     Dates: start: 20041102, end: 20041102
  4. RANITIDINE HCL [Suspect]
     Indication: ILL-DEFINED DISORDER
     Dosage: 25 MG (25 MG, 1 IN 1 D), INTRAVENOUS
     Route: 042
     Dates: start: 20041102, end: 20041102
  5. CARBOPLATIN [Suspect]
     Indication: OVARIAN CANCER
     Dosage: 150 MG (150 MG, 1 IN 1 D), INTRAVNEOUS
     Route: 042
     Dates: start: 20041102, end: 20041102
  6. EUMETIC (GRANISETRON HDYROCHLORIDE) [Suspect]
     Indication: ILL-DEFINED DISORDER
     Dosage: 3 MG (3 MG, 1 IN 1 D), INTRAVENOS
     Route: 042
     Dates: start: 20041102, end: 20041102

REACTIONS (4)
  - ABDOMINAL PAIN [None]
  - BURNING SENSATION [None]
  - DYSPEPSIA [None]
  - TACHYCARDIA [None]
